FAERS Safety Report 19744501 (Version 1)
Quarter: 2021Q3

REPORT INFORMATION
  Report Type: Spontaneous
  Country: US (occurrence: US)
  Receive Date: 20210823
  Receipt Date: 20210823
  Transmission Date: 20211014
  Serious: Yes (Hospitalization)
  Sender: FDA-Public Use
  Company Number: None

PATIENT
  Age: 58 Year
  Sex: Female

DRUGS (8)
  1. PREDNISONE. [Concomitant]
     Active Substance: PREDNISONE
  2. HUMIRA [Suspect]
     Active Substance: ADALIMUMAB
     Indication: RHEUMATOID ARTHRITIS
     Dosage: 40 MG/ML EVERY OTHER     SUBCUTANEOUS?MED EXPIRATRION DATE NOT REPORTED
     Route: 058
     Dates: start: 20210626
  3. AZITHROMYCIN ANHYDROUS. [Concomitant]
     Active Substance: AZITHROMYCIN ANHYDROUS
  4. GABAPENTIN. [Concomitant]
     Active Substance: GABAPENTIN
  5. SYNTHROID [Concomitant]
     Active Substance: LEVOTHYROXINE SODIUM
  6. OMEPRAZOLE. [Concomitant]
     Active Substance: OMEPRAZOLE
  7. TIZANIDINE. [Concomitant]
     Active Substance: TIZANIDINE
  8. TRAZODONE [Concomitant]
     Active Substance: TRAZODONE HYDROCHLORIDE

REACTIONS (2)
  - Pneumonia [None]
  - COVID-19 [None]
